FAERS Safety Report 19841021 (Version 1)
Quarter: 2021Q3

REPORT INFORMATION
  Report Type: Spontaneous
  Country: DE (occurrence: DE)
  Receive Date: 20210915
  Receipt Date: 20210915
  Transmission Date: 20211014
  Serious: Yes (Hospitalization)
  Sender: FDA-Public Use
  Company Number: DE-009507513-2109DEU002836

PATIENT
  Age: 83 Year
  Sex: Male

DRUGS (12)
  1. ACETYLSALICYLIC ACID [Concomitant]
     Active Substance: ASPIRIN
     Dosage: 100 MG, 0?1?0?0, TABLETS
     Route: 048
  2. SITAGLIPTIN PHOSPHATE [Suspect]
     Active Substance: SITAGLIPTIN PHOSPHATE
     Dosage: 25 MG, 1?0?0?0, TABLETS
     Route: 048
  3. ATORVASTATIN [Concomitant]
     Active Substance: ATORVASTATIN
     Dosage: 40 MG, 0?1?0?0, TABLETS
     Route: 048
  4. SORBITOL. [Concomitant]
     Active Substance: SORBITOL
     Dosage: 4 G, 0?1?0?0, BAG
     Route: 048
  5. CLOPIDOGREL [Concomitant]
     Active Substance: CLOPIDOGREL BISULFATE
     Dosage: 75 MG, 1?0?0?0, TABLETS
     Route: 048
  6. BISOPROLOL [Concomitant]
     Active Substance: BISOPROLOL
     Dosage: 5 MG, 0.5?0?0?0, TABLETS
     Route: 048
  7. PREDNISOLONE. [Concomitant]
     Active Substance: PREDNISOLONE
     Dosage: 20 MG, 1?0?0?0, TABLETS
     Route: 048
  8. SACUBITRIL;VALSARTAN [Suspect]
     Active Substance: SACUBITRIL\VALSARTAN
     Dosage: 24|26 MG, 1?0?1?0, TABLETS
     Route: 048
  9. SODIUM BICARBONATE. [Concomitant]
     Active Substance: SODIUM BICARBONATE
     Dosage: 1 G, 1?0?0?0, TABLETS
     Route: 048
  10. ESOMEPRAZOLE. [Concomitant]
     Active Substance: ESOMEPRAZOLE MAGNESIUM
     Dosage: 40 MG, 0?0?1?0, TABLETS
     Route: 048
  11. ARANESP [Concomitant]
     Active Substance: DARBEPOETIN ALFA
     Dosage: 100 ?G/0,5ML, EVERY TWO WEEKS ONCE IN THE MORNING, PRE?FILLED SYRINGES
     Route: 058
  12. DEKRISTOL [Concomitant]
     Active Substance: CHOLECALCIFEROL
     Dosage: 20000 IU, EVERY TWO WEEKS ONCE IN THE MORNING, SOFT CAPSULES
     Route: 048

REACTIONS (2)
  - Oedema peripheral [Recovering/Resolving]
  - Acute kidney injury [Recovering/Resolving]
